FAERS Safety Report 6550228-X (Version None)
Quarter: 2010Q1

REPORT INFORMATION
  Report Type: 
  Country: None (occurrence: None)
  Receive Date: 20100125
  Receipt Date: 20100121
  Transmission Date: 20100710
  Serious: Yes (Life-Threatening, Hospitalization)
  Sender: FDA-Public Use
  Company Number: GXKR2009DE12984

PATIENT
  Age: 61 Year
  Sex: Male
  Weight: 90 kg

DRUGS (8)
  1. ENAHEXAL COMP (NGX) [Suspect]
     Indication: HYPERTENSION
     Dosage: 1 DOSAGE FORM DAILY
     Route: 048
     Dates: end: 20090905
  2. MEGLUCON HEXAL (NGX) [Suspect]
     Indication: TYPE 2 DIABETES MELLITUS
     Dosage: 1000 MG, TID
     Route: 048
     Dates: start: 20050101, end: 20090905
  3. SPIRONOLACTONE (NGX) [Suspect]
     Dosage: 25 MG, QD
     Dates: end: 20090905
  4. DIURAPID [Suspect]
     Indication: HYPERTENSION
     Dosage: 40 MG, QD
     Route: 048
     Dates: end: 20090905
  5. OLMETEC [Suspect]
     Indication: HYPERTENSION
     Dosage: 20 MG, BID
     Route: 048
     Dates: end: 20090901
  6. OLMETEC [Suspect]
     Dosage: 10 MG, QD
     Dates: start: 20090910
  7. INSULIN HUMALOG MIX [Concomitant]
     Indication: TYPE 2 DIABETES MELLITUS
     Route: 058
  8. MOXONIDINE [Concomitant]
     Indication: HYPERTENSION
     Dosage: 0.3 MG, QD
     Route: 048
     Dates: end: 20090905

REACTIONS (2)
  - LACTIC ACIDOSIS [None]
  - RENAL FAILURE ACUTE [None]
